FAERS Safety Report 14404393 (Version 1)
Quarter: 2018Q1

REPORT INFORMATION
  Report Type: Report from Study
  Country: US (occurrence: US)
  Receive Date: 20180117
  Receipt Date: 20180117
  Transmission Date: 20180509
  Serious: Yes (Hospitalization)
  Sender: FDA-Public Use
  Company Number: US-SEATTLE GENETICS-2017SGN03170

PATIENT
  Age: 20 Year
  Sex: Male
  Weight: 48.9 kg

DRUGS (19)
  1. ONDANSETRON [Concomitant]
     Active Substance: ONDANSETRON
  2. POLYETHYLENE GLYCOL 3350. [Concomitant]
     Active Substance: POLYETHYLENE GLYCOL 3350
  3. LORAZEPAM. [Concomitant]
     Active Substance: LORAZEPAM
  4. OXYGEN. [Concomitant]
     Active Substance: OXYGEN
     Indication: PO2 DECREASED
  5. BRENTUXIMAB VEDOTIN [Suspect]
     Active Substance: BRENTUXIMAB VEDOTIN
     Indication: HODGKIN^S DISEASE
     Dosage: 1.8 MG/KG, Q21D
     Route: 042
     Dates: start: 20171115, end: 20171122
  6. VINCRISTINE [Suspect]
     Active Substance: VINCRISTINE
     Indication: HODGKIN^S DISEASE
     Dosage: 1.4 MG/M2, Q3WEEKS
     Route: 042
     Dates: start: 20171115, end: 20171122
  7. LANSOPRAZOLE. [Concomitant]
     Active Substance: LANSOPRAZOLE
  8. ZOSYN [Concomitant]
     Active Substance: PIPERACILLIN SODIUM\TAZOBACTAM SODIUM
     Indication: PYREXIA
     Dosage: UNK
     Route: 042
     Dates: start: 201711, end: 201711
  9. CYCLOPHOSPHAMIDE. [Suspect]
     Active Substance: CYCLOPHOSPHAMIDE
     Indication: HODGKIN^S DISEASE
     Dosage: 600 MG/M2, Q3WEEKS
     Route: 042
     Dates: start: 20171115, end: 20171122
  10. ETOPOSIDE. [Suspect]
     Active Substance: ETOPOSIDE
     Indication: HODGKIN^S DISEASE
     Dosage: 125 MG/M2, Q3WEEKS
     Route: 042
     Dates: start: 20171115, end: 20171122
  11. PREDNISONE. [Suspect]
     Active Substance: PREDNISONE
     Indication: HODGKIN^S DISEASE
     Dosage: 20 MG/M2, QCYCLE
     Route: 048
     Dates: start: 20171115, end: 20171122
  12. OXYGEN. [Concomitant]
     Active Substance: OXYGEN
     Indication: TACHYPNOEA
     Dosage: UNK
     Route: 049
     Dates: start: 20171123
  13. BACLOFEN. [Concomitant]
     Active Substance: BACLOFEN
  14. DOXORUBICIN [Suspect]
     Active Substance: DOXORUBICIN
     Indication: HODGKIN^S DISEASE
     Dosage: 25 MG/M2, Q3WEEKS
     Route: 040
     Dates: start: 20171115, end: 20171122
  15. BACITRACIN POLYMYXIN B [Concomitant]
  16. OXCARBAZEPINE. [Concomitant]
     Active Substance: OXCARBAZEPINE
  17. GRANISETRON [Concomitant]
     Active Substance: GRANISETRON
  18. VANCOMYCIN [Concomitant]
     Active Substance: VANCOMYCIN
     Indication: PYREXIA
     Dosage: UNK
     Route: 042
     Dates: start: 201711, end: 201711
  19. FILGRASTIM [Concomitant]
     Active Substance: FILGRASTIM
     Indication: NEUTROPENIA
     Dosage: UNK
     Dates: start: 20171128, end: 20171130

REACTIONS (3)
  - Lung infection [Not Recovered/Not Resolved]
  - Sepsis [Not Recovered/Not Resolved]
  - Respiratory failure [Not Recovered/Not Resolved]

NARRATIVE: CASE EVENT DATE: 20171201
